FAERS Safety Report 22588203 (Version 1)
Quarter: 2023Q2

REPORT INFORMATION
  Report Type: Spontaneous
  Country: MX (occurrence: MX)
  Receive Date: 20230612
  Receipt Date: 20230612
  Transmission Date: 20230722
  Serious: Yes (Hospitalization)
  Sender: FDA-Public Use
  Company Number: MX-STRIDES ARCOLAB LIMITED-2023SP009175

PATIENT
  Age: 3 Year
  Sex: Male

DRUGS (4)
  1. ETOPOSIDE [Suspect]
     Active Substance: ETOPOSIDE
     Indication: Retinoblastoma
     Dosage: UNK, CYCLICAL
     Route: 065
  2. CISPLATIN [Suspect]
     Active Substance: CISPLATIN
     Indication: Retinoblastoma
     Dosage: UNK, CYCLICAL
     Route: 065
  3. VINCRISTINE [Suspect]
     Active Substance: VINCRISTINE
     Indication: Retinoblastoma
     Dosage: UNK, CYCLICAL
     Route: 065
  4. CYCLOPHOSPHAMIDE [Suspect]
     Active Substance: CYCLOPHOSPHAMIDE
     Indication: Retinoblastoma
     Dosage: UNK, CYCLICAL
     Route: 065

REACTIONS (7)
  - Pancytopenia [Not Recovered/Not Resolved]
  - Febrile neutropenia [Unknown]
  - Haematological infection [Recovered/Resolved]
  - Sepsis [Unknown]
  - Rhodococcus infection [Recovered/Resolved]
  - Corynebacterium infection [Unknown]
  - Off label use [Unknown]
